FAERS Safety Report 5534378-2 (Version None)
Quarter: 2007Q4

REPORT INFORMATION
  Report Type: 
  Country: None (occurrence: None)
  Receive Date: 20071130
  Receipt Date: 20071117
  Transmission Date: 20080405
  Serious: Yes (Other)
  Sender: FDA-Public Use
  Company Number: 2007-02865

PATIENT
  Age: 66 Year
  Sex: Female
  Weight: 53 kg

DRUGS (1)
  1. VELCADE [Suspect]
     Indication: MULTIPLE MYELOMA
     Dosage: 1.90 MG, INTRAVENOUS
     Route: 042
     Dates: start: 20070719, end: 20070729

REACTIONS (16)
  - ACQUIRED DIAPHRAGMATIC EVENTRATION [None]
  - ASCITES [None]
  - ATELECTASIS [None]
  - BONE DISORDER [None]
  - CONSTIPATION [None]
  - HERPES ZOSTER [None]
  - LUMBAR VERTEBRAL FRACTURE [None]
  - LUNG DISORDER [None]
  - LYMPHADENOPATHY [None]
  - NASOPHARYNGITIS [None]
  - NAUSEA [None]
  - NEPHROLITHIASIS [None]
  - OSTEOSCLEROSIS [None]
  - PLEURAL EFFUSION [None]
  - PNEUMONIA [None]
  - THORACIC VERTEBRAL FRACTURE [None]
